FAERS Safety Report 5425036-3 (Version None)
Quarter: 2007Q3

REPORT INFORMATION
  Report Type: 
  Country: None (occurrence: None)
  Receive Date: 20070731
  Receipt Date: 20070612
  Transmission Date: 20080115
  Serious: No
  Sender: FDA-Public Use
  Company Number: US200706005113

PATIENT
  Age: 76 Year
  Sex: Female

DRUGS (6)
  1. BYETTA [Suspect]
     Indication: TYPE 2 DIABETES MELLITUS
     Dosage: 5 UG, 2/D , SUBCUTANEOUS; 10 UG, 2/D, SUBCUTANEOUS
     Route: 058
     Dates: start: 20060101, end: 20060101
  2. BYETTA [Suspect]
     Indication: TYPE 2 DIABETES MELLITUS
     Dosage: 5 UG, 2/D , SUBCUTANEOUS; 10 UG, 2/D, SUBCUTANEOUS
     Route: 058
     Dates: start: 20060101
  3. EXENATIDE 5MCG  PEN, DISPOSABLE DEVICE (EXENATIDE PEN, (5MCG)) PEN,  D [Concomitant]
  4. EXENATIDE 10MCG  PEN, DISPOSABLE DEVICE (EXENATIDE  PEN, (10MCG)) PEN, [Suspect]
  5. LISINOPRIL [Concomitant]
  6. GLIPIZIDE [Concomitant]

REACTIONS (2)
  - BLOOD CREATINE DECREASED [None]
  - CYSTITIS [None]
